FAERS Safety Report 7454892-2 (Version None)
Quarter: 2011Q2

REPORT INFORMATION
  Report Type: 
  Country: None (occurrence: None)
  Receive Date: 20110425
  Receipt Date: 20110408
  Transmission Date: 20111010
  Serious: Yes (Hospitalization)
  Sender: FDA-Public Use
  Company Number: 2011SA024820

PATIENT
  Age: 85 Year
  Sex: Male

DRUGS (4)
  1. DRUG ELUTING STENT [Suspect]
     Indication: PERCUTANEOUS CORONARY INTERVENTION
     Dates: start: 20101124
  2. PLAVIX [Suspect]
     Indication: PERCUTANEOUS CORONARY INTERVENTION
     Dosage: 600  MILLIGRAM(S), ONCE; 75 MILLIGRAM(S), DAILY, ORAL
     Route: 048
     Dates: start: 20101124
  3. PLAVIX [Suspect]
     Indication: PERCUTANEOUS CORONARY INTERVENTION
     Dosage: 600  MILLIGRAM(S), ONCE; 75 MILLIGRAM(S), DAILY, ORAL
     Route: 048
     Dates: start: 20101123, end: 20101123
  4. ASPIRIN [Suspect]
     Indication: PERCUTANEOUS CORONARY INTERVENTION
     Dosage: 325 MILLIGRAM(S);
     Dates: start: 20101122

REACTIONS (28)
  - NON-CARDIAC CHEST PAIN [None]
  - HIATUS HERNIA [None]
  - ROTATOR CUFF SYNDROME [None]
  - METABOLIC DISORDER [None]
  - HEART RATE DECREASED [None]
  - BLOOD CREATINE PHOSPHOKINASE INCREASED [None]
  - BARRETT'S OESOPHAGUS [None]
  - DIZZINESS [None]
  - ELECTROCARDIOGRAM T WAVE ABNORMAL [None]
  - BLOOD CREATINE PHOSPHOKINASE MB INCREASED [None]
  - HYPOAESTHESIA [None]
  - CARPAL TUNNEL SYNDROME [None]
  - HAEMORRHAGE [None]
  - IRON DEFICIENCY ANAEMIA [None]
  - NAUSEA [None]
  - DYSPNOEA EXERTIONAL [None]
  - MITRAL VALVE INCOMPETENCE [None]
  - GASTRITIS [None]
  - DUODENITIS [None]
  - DIVERTICULUM INTESTINAL [None]
  - CHEST DISCOMFORT [None]
  - ABDOMINAL DISCOMFORT [None]
  - ELECTROCARDIOGRAM ST-T CHANGE [None]
  - GASTRIC ULCER [None]
  - AORTIC STENOSIS [None]
  - AORTIC VALVE DISEASE [None]
  - MUSCULOSKELETAL PAIN [None]
  - MITRAL VALVE DISEASE [None]
